FAERS Safety Report 8840532 (Version 2)
Quarter: 2012Q4

REPORT INFORMATION
  Report Type: 
  Country: US (occurrence: US)
  Receive Date: 20121015
  Receipt Date: 20121106
  Transmission Date: 20130627
  Serious: Yes (Death)
  Sender: FDA-Public Use
  Company Number: US-FRI-1000039256

PATIENT
  Age: 37 Year
  Sex: Male
  Weight: 95 kg

DRUGS (4)
  1. VIIBRYD [Suspect]
     Indication: DEPRESSION
     Dosage: 10 mg
     Route: 048
     Dates: start: 20120627, end: 20120821
  2. VIIBRYD [Suspect]
     Indication: ANXIETY
  3. LEXAPRO [Concomitant]
     Indication: DEPRESSION
     Dosage: 20 mg
     Route: 048
     Dates: start: 20120516, end: 20120821
  4. LEXAPRO [Concomitant]
     Indication: ANXIETY

REACTIONS (1)
  - Completed suicide [Fatal]
